FAERS Safety Report 7703326-9 (Version None)
Quarter: 2011Q3

REPORT INFORMATION
  Report Type: 
  Country: None (occurrence: None)
  Receive Date: 20110823
  Receipt Date: 20110811
  Transmission Date: 20111222
  Serious: Yes (Other)
  Sender: FDA-Public Use
  Company Number: CA-ELI_LILLY_AND_COMPANY-CA201108003730

PATIENT
  Sex: Male

DRUGS (7)
  1. ZANTAC [Concomitant]
  2. ZYPREXA [Suspect]
     Dosage: 7.5 MG, UNKNOWN
  3. SEROQUEL [Concomitant]
  4. ZYPREXA [Suspect]
     Indication: SCHIZOAFFECTIVE DISORDER
     Dosage: 5 MG, UNKNOWN
  5. PROVERA [Concomitant]
  6. ZYPREXA [Suspect]
     Dosage: 10 MG, UNKNOWN
  7. CLOPIXOL [Concomitant]

REACTIONS (12)
  - PLATELET COUNT DECREASED [None]
  - HYPOGLYCAEMIA [None]
  - HAEMATOSPERMIA [None]
  - DANDRUFF [None]
  - FUNGAL SKIN INFECTION [None]
  - BLOOD TRIGLYCERIDES INCREASED [None]
  - TACHYCARDIA [None]
  - SKIN IRRITATION [None]
  - TYPE 2 DIABETES MELLITUS [None]
  - ANGLE CLOSURE GLAUCOMA [None]
  - CHEST PAIN [None]
  - GLUCOSE TOLERANCE IMPAIRED [None]
